FAERS Safety Report 5381159-9 (Version None)
Quarter: 2007Q3

REPORT INFORMATION
  Report Type: 
  Country: None (occurrence: None)
  Receive Date: 20070706
  Receipt Date: 20070626
  Transmission Date: 20080115
  Serious: Yes (Other)
  Sender: FDA-Public Use
  Company Number: US-PFIZER INC-2007050913

PATIENT
  Sex: Male
  Weight: 72.7 kg

DRUGS (3)
  1. CHANTIX [Suspect]
     Indication: SMOKING CESSATION THERAPY
  2. AMLODIPINE BESYLATE [Concomitant]
  3. VYTORIN [Concomitant]
     Indication: BLOOD CHOLESTEROL

REACTIONS (1)
  - SKIN LESION [None]
